FAERS Safety Report 12729224 (Version 2)
Quarter: 2016Q3

REPORT INFORMATION
  Report Type: Spontaneous
  Country: JP (occurrence: JP)
  Receive Date: 20160909
  Receipt Date: 20160930
  Transmission Date: 20161109
  Serious: Yes (Other)
  Sender: FDA-Public Use
  Company Number: JP-PFIZER INC-2016421110

PATIENT
  Age: 17 Year
  Sex: Female
  Weight: 34 kg

DRUGS (1)
  1. GENOTROPIN [Suspect]
     Active Substance: SOMATROPIN
     Indication: BODY HEIGHT BELOW NORMAL
     Dosage: 2.55 MG, DAILY
     Route: 058
     Dates: start: 20120906, end: 20160803

REACTIONS (1)
  - Acromegaly [Not Recovered/Not Resolved]

NARRATIVE: CASE EVENT DATE: 20160727
